FAERS Safety Report 6373992-1 (Version None)
Quarter: 2009Q3

REPORT INFORMATION
  Report Type: 
  Country: None (occurrence: None)
  Receive Date: 20090924
  Receipt Date: 20090914
  Transmission Date: 20100115
  Serious: Yes (Other)
  Sender: FDA-Public Use
  Company Number: US-ROCHE-657300

PATIENT
  Age: 59 Year
  Sex: Male

DRUGS (5)
  1. MYCOPHENOLATE MOFETIL [Suspect]
     Dosage: MAINTENANCE THERAPY
     Route: 065
  2. ALEMTUZUMAB [Suspect]
     Route: 042
  3. TACROLIMUS [Suspect]
     Dosage: 12-HOUR TARGET TROUGH LEVELS 6-8 NG/ML
     Route: 048
  4. VANCOMYCIN [Concomitant]
  5. CIPROFLAXACIN [Concomitant]

REACTIONS (2)
  - GRAFT DYSFUNCTION [None]
  - RENAL TUBULAR NECROSIS [None]
